FAERS Safety Report 10206138 (Version 2)
Quarter: 2014Q2

REPORT INFORMATION
  Report Type: Spontaneous
  Country: US (occurrence: US)
  Receive Date: 20140530
  Receipt Date: 20140617
  Transmission Date: 20141212
  Serious: No
  Sender: FDA-Public Use
  Company Number: US-PFIZER INC-2014147165

PATIENT
  Age: 34 Year
  Sex: Female
  Weight: 68.03 kg

DRUGS (2)
  1. XELJANZ [Suspect]
     Indication: RHEUMATOID ARTHRITIS
     Dosage: 5 MG, 2X/DAY
     Dates: start: 2013, end: 20130902
  2. SYNTHROID [Concomitant]
     Indication: HYPOTHYROIDISM
     Dosage: 200 UG, DAILY

REACTIONS (2)
  - Arthritis [Unknown]
  - Weight increased [Unknown]
